FAERS Safety Report 10187540 (Version 1)
Quarter: 2014Q2

REPORT INFORMATION
  Report Type: Spontaneous
  Country: US (occurrence: US)
  Receive Date: 20140522
  Receipt Date: 20140522
  Transmission Date: 20141212
  Serious: No
  Sender: FDA-Public Use
  Company Number: US-SANOFI-AVENTIS-2013SA081099

PATIENT
  Age: 75 Year
  Sex: Male

DRUGS (4)
  1. SOLOSTAR [Suspect]
     Indication: TYPE 2 DIABETES MELLITUS
     Dosage: PRODUCT STARTED 5-6 YEARS AGO.
  2. LANTUS SOLOSTAR [Suspect]
     Indication: TYPE 2 DIABETES MELLITUS
     Dosage: PRODUCT STARTED 5-6 YEARS AGO. DOSE:27 UNIT(S)
     Route: 051
  3. METFORMIN [Suspect]
     Route: 065
  4. GLIPIZIDE [Suspect]
     Route: 065

REACTIONS (5)
  - Nausea [Unknown]
  - Vision blurred [Unknown]
  - Blood glucose abnormal [Unknown]
  - Blood glucose decreased [Unknown]
  - Injection site pain [Unknown]
